FAERS Safety Report 13301484 (Version 2)
Quarter: 2017Q2

REPORT INFORMATION
  Report Type: Spontaneous
  Country: US (occurrence: US)
  Receive Date: 20170307
  Receipt Date: 20170422
  Transmission Date: 20170830
  Serious: Yes (Life-Threatening, Hospitalization, Other)
  Sender: FDA-Public Use
  Company Number: PHHY2017US027575

PATIENT
  Age: 74 Year
  Sex: Female

DRUGS (3)
  1. DEXTROSE INJECTION [Concomitant]
     Indication: BLOOD GLUCOSE DECREASED
     Dosage: 50 ML, UNK
     Route: 042
  2. BACTRIM [Concomitant]
     Active Substance: SULFAMETHOXAZOLE\TRIMETHOPRIM
     Indication: DYSURIA
     Dosage: UNK
     Route: 065
  3. METFORMIN [Suspect]
     Active Substance: METFORMIN HYDROCHLORIDE
     Indication: TYPE 2 DIABETES MELLITUS
     Dosage: UNK
     Route: 065

REACTIONS (7)
  - Acute kidney injury [Recovering/Resolving]
  - Abdominal pain [Unknown]
  - Lactic acidosis [Unknown]
  - Vomiting [Unknown]
  - Nausea [Unknown]
  - Diarrhoea [Unknown]
  - Back pain [Unknown]
